FAERS Safety Report 6074658-8 (Version None)
Quarter: 2009Q1

REPORT INFORMATION
  Report Type: 
  Country: None (occurrence: None)
  Receive Date: 20090209
  Receipt Date: 20090128
  Transmission Date: 20090719
  Serious: Yes (Other)
  Sender: FDA-Public Use
  Company Number: 232526K08USA

PATIENT
  Age: 37 Year
  Sex: Female
  Weight: 93 kg

DRUGS (6)
  1. REBIF [Suspect]
     Indication: MULTIPLE SCLEROSIS
     Dosage: SEE IMAGE
     Route: 058
     Dates: start: 20081125, end: 20080101
  2. REBIF [Suspect]
     Indication: MULTIPLE SCLEROSIS
     Dosage: SEE IMAGE
     Route: 058
     Dates: start: 20081112, end: 20081125
  3. REBIF [Suspect]
     Indication: MULTIPLE SCLEROSIS
     Dosage: SEE IMAGE
     Route: 058
     Dates: start: 20080101, end: 20081201
  4. MOBIC [Concomitant]
  5. HORMONE PATCH (HORMONES AND RELATED AGENTS) [Concomitant]
  6. IMITREX (SUMATRIPTAN) [Concomitant]

REACTIONS (8)
  - ABASIA [None]
  - ANAPHYLACTIC REACTION [None]
  - CONVULSION [None]
  - FEELING ABNORMAL [None]
  - HEADACHE [None]
  - HYPOAESTHESIA [None]
  - PARAESTHESIA [None]
  - PARAESTHESIA ORAL [None]
